FAERS Safety Report 13257892 (Version 1)
Quarter: 2017Q1

REPORT INFORMATION
  Report Type: Spontaneous
  Country: US (occurrence: US)
  Receive Date: 20170221
  Receipt Date: 20170221
  Transmission Date: 20170428
  Serious: Yes (Other)
  Sender: FDA-Public Use
  Company Number: US-SEATTLE GENETICS-2017SGN00001

PATIENT

DRUGS (1)
  1. ADCETRIS [Suspect]
     Active Substance: BRENTUXIMAB VEDOTIN
     Indication: HODGKIN^S DISEASE
     Route: 065

REACTIONS (9)
  - Cough [Unknown]
  - Thyroid disorder [Unknown]
  - Heart rate increased [Unknown]
  - Asthenia [Unknown]
  - Fatigue [Unknown]
  - Lung neoplasm malignant [Unknown]
  - Oesophageal candidiasis [Unknown]
  - Alopecia [Unknown]
  - Nausea [Unknown]
